FAERS Safety Report 11967121 (Version 1)
Quarter: 2016Q1

REPORT INFORMATION
  Report Type: Spontaneous
  Country: US (occurrence: US)
  Receive Date: 20160127
  Receipt Date: 20160127
  Transmission Date: 20160526
  Serious: No
  Sender: FDA-Public Use
  Company Number: US-009507513-1601USA009278

PATIENT
  Age: 72 Year
  Sex: Female

DRUGS (1)
  1. BELSOMRA [Suspect]
     Active Substance: SUVOREXANT
     Indication: SLEEP DISORDER
     Dosage: 10 MG, AT NIGHT TIME FOR SLEEP
     Route: 050

REACTIONS (4)
  - Incorrect route of drug administration [Unknown]
  - Drug ineffective [Not Recovered/Not Resolved]
  - Fear [Unknown]
  - Wrong technique in product usage process [Unknown]
